FAERS Safety Report 9053004 (Version 3)
Quarter: 2013Q2

REPORT INFORMATION
  Report Type: Spontaneous
  Country: US (occurrence: US)
  Receive Date: 20130208
  Receipt Date: 20130531
  Transmission Date: 20140414
  Serious: Yes (Hospitalization)
  Sender: FDA-Public Use
  Company Number: US-BIOGENIDEC-2013BI010070

PATIENT
  Age: 65 Year
  Sex: Female

DRUGS (2)
  1. AVONEX [Suspect]
     Indication: MULTIPLE SCLEROSIS
     Route: 030
     Dates: start: 20130121
  2. MEDICATION (NOS) [Concomitant]

REACTIONS (7)
  - Pneumonia aspiration [Not Recovered/Not Resolved]
  - Pulmonary oedema [Recovered/Resolved]
  - Dyspnoea [Recovered/Resolved]
  - Nephropathy [Not Recovered/Not Resolved]
  - Angiopathy [Not Recovered/Not Resolved]
  - Lung disorder [Not Recovered/Not Resolved]
  - Injection site pain [Recovered/Resolved]
